FAERS Safety Report 7386166-2 (Version None)
Quarter: 2011Q1

REPORT INFORMATION
  Report Type: 
  Country: None (occurrence: None)
  Receive Date: 20110329
  Receipt Date: 20110329
  Transmission Date: 20110831
  Serious: Yes (Hospitalization)
  Sender: FDA-Public Use
  Company Number: None

PATIENT
  Age: 38 Year
  Sex: Male
  Weight: 118.2 kg

DRUGS (1)
  1. HCG [Suspect]
     Indication: WEIGHT LOSS DIET
     Dosage: 4 PILLS 3X'S PER DAY ORAL
     Route: 048
     Dates: start: 20110318, end: 20110320

REACTIONS (4)
  - ATRIAL FIBRILLATION [None]
  - CONDITION AGGRAVATED [None]
  - HEART RATE INCREASED [None]
  - ATRIAL FLUTTER [None]
